FAERS Safety Report 5368275-2 (Version None)
Quarter: 2007Q2

REPORT INFORMATION
  Report Type: 
  Country: None (occurrence: None)
  Receive Date: 20070619
  Receipt Date: 20070604
  Transmission Date: 20071010
  Serious: Yes (Hospitalization)
  Sender: FDA-Public Use
  Company Number: 2007RR-07945

PATIENT
  Sex: Male

DRUGS (2)
  1. BENDROFLUMENTHIAZIDE (BENDROFLUMENTHIAZIDE) UNKNOWN [Suspect]
     Dosage: ORAL
     Route: 048
  2. FLECAINIDE ACETATE (FLECAINIDE) UNKNOWN [Suspect]

REACTIONS (9)
  - ASTHENIA [None]
  - DRUG INTERACTION [None]
  - DRUG TOXICITY [None]
  - ELECTROCARDIOGRAM QRS COMPLEX PROLONGED [None]
  - ELECTROLYTE IMBALANCE [None]
  - FATIGUE [None]
  - HYPOKALAEMIA [None]
  - HYPONATRAEMIA [None]
  - SYNCOPE [None]
